FAERS Safety Report 6154746-8 (Version None)
Quarter: 2009Q2

REPORT INFORMATION
  Report Type: 
  Country: None (occurrence: None)
  Receive Date: 20090414
  Receipt Date: 20090408
  Transmission Date: 20091009
  Serious: Yes (Other)
  Sender: FDA-Public Use
  Company Number: DE-GENENTECH-280546

PATIENT
  Sex: Male
  Weight: 94 kg

DRUGS (5)
  1. ACTILYSE [Suspect]
     Indication: PULMONARY EMBOLISM
     Dosage: 90 MG, SINGLE
     Route: 042
     Dates: start: 20090324, end: 20090324
  2. ACTILYSE [Suspect]
     Indication: DEEP VEIN THROMBOSIS
  3. NOVALGIN [Suspect]
     Indication: PAIN
     Dosage: 1 G, UNK
     Route: 042
     Dates: start: 20090324
  4. NOVALGIN [Suspect]
     Indication: PYREXIA
  5. CONTRAST MEDIA NOS [Concomitant]
     Indication: COMPUTERISED TOMOGRAM
     Dosage: UNK
     Route: 042
     Dates: start: 20090324, end: 20090324

REACTIONS (5)
  - BRONCHOSPASM [None]
  - FLUSHING [None]
  - RASH GENERALISED [None]
  - TACHYCARDIA [None]
  - URTICARIA [None]
